FAERS Safety Report 7050984-0 (Version None)
Quarter: 2010Q4

REPORT INFORMATION
  Report Type: 
  Country: None (occurrence: None)
  Receive Date: 20101019
  Receipt Date: 20101005
  Transmission Date: 20110411
  Serious: Yes (Hospitalization)
  Sender: FDA-Public Use
  Company Number: FR-SHIRE-SPV1-2010-01785

PATIENT
  Sex: Male

DRUGS (7)
  1. MIDON [Suspect]
     Indication: ORTHOSTATIC HYPOTENSION
     Dosage: 2.5 MG, UNKNOWN
     Route: 048
     Dates: start: 20070101, end: 20080304
  2. MIDON [Suspect]
     Dates: start: 20080305, end: 20080514
  3. MIDON [Suspect]
     Dates: start: 20080515, end: 20091026
  4. MIDON [Suspect]
  5. FLUDROCORTISONE [Suspect]
     Indication: ORTHOSTATIC HYPOTENSION
     Dosage: 50UG DAILY
     Route: 048
     Dates: start: 20080709, end: 20100501
  6. PERMIXON                           /00833501/ [Concomitant]
     Indication: BENIGN PROSTATIC HYPERPLASIA
     Dosage: UNK, UNKNOWN
     Route: 048
     Dates: start: 20091028
  7. INEXIUM                            /01479302/ [Concomitant]
     Indication: PRODUCT USED FOR UNKNOWN INDICATION
     Dosage: UNK, UNKNOWN
     Route: 048
     Dates: start: 20091028

REACTIONS (2)
  - HYPERTENSION [None]
  - HYPERTENSIVE ENCEPHALOPATHY [None]
